FAERS Safety Report 11317288 (Version 1)
Quarter: 2015Q3

REPORT INFORMATION
  Report Type: Spontaneous
  Country: FR (occurrence: FR)
  Receive Date: 20150728
  Receipt Date: 20150728
  Transmission Date: 20151125
  Serious: Yes (Hospitalization)
  Sender: FDA-Public Use
  Company Number: FR-PFIZER INC-2015244222

PATIENT
  Age: 79 Year
  Sex: Female

DRUGS (7)
  1. PLAVIX [Concomitant]
     Active Substance: CLOPIDOGREL BISULFATE
     Dosage: 75 MG, 1X/DAY
     Route: 048
  2. THERALENE [Suspect]
     Active Substance: TRIMEPRAZINE
     Dosage: 5 GTT AT NOON AND 50 GTT IN THE EVENING
     Route: 048
  3. DIFFU-K [Concomitant]
     Active Substance: POTASSIUM CHLORIDE
     Dosage: 1200 MG, 2X/DAY
     Route: 048
  4. TEMESTA /00273201/ [Suspect]
     Active Substance: LORAZEPAM
     Dosage: 2 MG, 3X/DAY
     Route: 048
  5. CERIS [Suspect]
     Active Substance: TROSPIUM CHLORIDE
     Dosage: 20 MG, 2X/DAY IN THE MORNING AND IN THE EVENING
     Route: 048
  6. ZOLPIDEM [Suspect]
     Active Substance: ZOLPIDEM\ZOLPIDEM TARTRATE
     Dosage: 1 DF, 1X/DAY IN THE EVENING
     Route: 048
  7. LYRICA [Suspect]
     Active Substance: PREGABALIN
     Dosage: 50 MG IN THE MORNING AND 100 MG IN THE EVENING
     Route: 048
     Dates: start: 2015

REACTIONS (3)
  - Abnormal behaviour [Recovered/Resolved]
  - Somnolence [Recovered/Resolved]
  - Dysarthria [Recovered/Resolved]

NARRATIVE: CASE EVENT DATE: 20150502
